FAERS Safety Report 4939506-5 (Version None)
Quarter: 2006Q1

REPORT INFORMATION
  Report Type: 
  Country: None (occurrence: None)
  Receive Date: 20060306
  Receipt Date: 20060217
  Transmission Date: 20060701
  Serious: Yes (Other)
  Sender: FDA-Public Use
  Company Number: EWC050845469

PATIENT
  Age: 12 Year
  Sex: Male
  Weight: 50 kg

DRUGS (4)
  1. STRATTERA [Suspect]
     Dosage: 60 MG
     Dates: start: 20050606
  2. CONCERTA [Concomitant]
  3. DIPIPERON (PIPAMPERONE HYDROCHLORIDE) [Concomitant]
  4. MELATONIN (MELATONIN) [Concomitant]

REACTIONS (3)
  - ACNE [None]
  - PRURITUS GENERALISED [None]
  - SKIN SWELLING [None]
